FAERS Safety Report 14746206 (Version 1)
Quarter: 2018Q2

REPORT INFORMATION
  Report Type: Spontaneous
  Country: US (occurrence: US)
  Receive Date: 20180411
  Receipt Date: 20180411
  Transmission Date: 20180711
  Serious: No
  Sender: FDA-Public Use
  Company Number: US-PFIZER INC-2018143430

PATIENT
  Age: 75 Year
  Sex: Male
  Weight: 83.9 kg

DRUGS (5)
  1. ROSUVASTATIN. [Concomitant]
     Active Substance: ROSUVASTATIN
     Indication: BLOOD CHOLESTEROL ABNORMAL
     Dosage: 5 MG, ONCE A DAY
     Route: 048
  2. ELIQUIS [Concomitant]
     Active Substance: APIXABAN
     Indication: ANTICOAGULANT THERAPY
     Dosage: 5 MG, TWICE A DAY
     Route: 048
     Dates: start: 20180309
  3. TIKOSYN [Suspect]
     Active Substance: DOFETILIDE
     Indication: ATRIAL FIBRILLATION
     Dosage: 250 UG, 2X/DAY
     Route: 048
     Dates: start: 20180402
  4. METOPROLOL. [Concomitant]
     Active Substance: METOPROLOL
     Indication: HEART RATE ABNORMAL
     Dosage: 25 MG, TWICE A DAY
     Route: 048
  5. SILENOR [Interacting]
     Active Substance: DOXEPIN HYDROCHLORIDE
     Indication: SOMNOLENCE
     Dosage: 1.5 MG, ONCE A DAY AT NIGHT
     Route: 048

REACTIONS (2)
  - Headache [Recovered/Resolved]
  - Drug interaction [Unknown]

NARRATIVE: CASE EVENT DATE: 20180403
